FAERS Safety Report 8175580-3 (Version None)
Quarter: 2012Q1

REPORT INFORMATION
  Report Type: 
  Country: None (occurrence: None)
  Receive Date: 20120301
  Receipt Date: 20120221
  Transmission Date: 20120608
  Serious: Yes (Hospitalization)
  Sender: FDA-Public Use
  Company Number: US-BIOGENIDEC-2012BI004278

PATIENT
  Age: 49 Year
  Sex: Female

DRUGS (17)
  1. MILK OF MAGNESIA TAB [Concomitant]
  2. ATENOLOL [Concomitant]
  3. CYMBALTA [Concomitant]
  4. ROZEREM [Concomitant]
  5. POTASSIUM CHLORIDE [Concomitant]
  6. TOPAMAX [Concomitant]
  7. LITHIUM CARBONATE [Concomitant]
  8. PROTONIX [Concomitant]
  9. DULCOLAX [Concomitant]
     Route: 054
  10. TOVIAZ [Concomitant]
  11. TYSABRI [Suspect]
     Route: 042
     Dates: start: 20120101
  12. ACETAMINOPHEN [Concomitant]
  13. SUCRALFATE [Concomitant]
  14. TYSABRI [Suspect]
     Indication: MULTIPLE SCLEROSIS
     Route: 042
     Dates: start: 20090311, end: 20111111
  15. PERCOCET [Concomitant]
  16. ASPIRIN [Concomitant]
  17. DEPAKOTE [Concomitant]

REACTIONS (3)
  - SUPRAVENTRICULAR TACHYCARDIA [None]
  - STAPHYLOCOCCAL SEPSIS [None]
  - COLITIS ISCHAEMIC [None]
